FAERS Safety Report 17358229 (Version 1)
Quarter: 2020Q1

REPORT INFORMATION
  Report Type: Spontaneous
  Country: US (occurrence: US)
  Receive Date: 20200131
  Receipt Date: 20200131
  Transmission Date: 20200409
  Serious: Yes (Hospitalization, Other)
  Sender: FDA-Public Use
  Company Number: US-BAXTER-2020BAX001622

PATIENT
  Age: 68 Year
  Sex: Male

DRUGS (10)
  1. ARGATROBAN. [Concomitant]
     Active Substance: ARGATROBAN
     Indication: ANTICOAGULANT THERAPY
     Dosage: PURGE SOLUTION WAS INITIATED AS ARGATROBAN IN DEXTROSE 10% AT A CONCENTRATION OF 0.12 MG/ML
     Route: 065
  2. HEPARIN SODIUM IN 0.9% SODIUM CHLORIDE [Suspect]
     Active Substance: HEPARIN SODIUM\SODIUM CHLORIDE
     Indication: PRODUCT USED FOR UNKNOWN INDICATION
     Dosage: IMPELLA CP WITH AN HEPARIN BASED PURGE SOLUTION
     Route: 065
  3. HEPARIN SODIUM IN 0.9% SODIUM CHLORIDE [Suspect]
     Active Substance: HEPARIN SODIUM\SODIUM CHLORIDE
     Route: 065
  4. DEXTROSE. [Concomitant]
     Active Substance: DEXTROSE
     Indication: MEDICATION DILUTION
     Route: 065
  5. NOREPINEPHRINE BITARTRATE INJECTION, USP [Suspect]
     Active Substance: NOREPINEPHRINE BITARTRATE
     Dosage: WEANED TO?DOSE RANGE OF NOREPINEPHRINE (0 TO 0.32 MCG/KG/MIN)
     Route: 065
  6. DOBUTAMINE HYDROCHLORIDE IN DEXTROSE [Suspect]
     Active Substance: DEXTROSE MONOHYDRATE\DEXTROSE MONOHYDRATE\DOBUTAMINE HYDROCHLORIDE\DOBUTAMINE HYDROCHLORIDE
     Indication: PRODUCT USED FOR UNKNOWN INDICATION
     Route: 065
  7. VASOPRESSIN. [Suspect]
     Active Substance: VASOPRESSIN
     Indication: BLOOD PRESSURE MANAGEMENT
     Dosage: 0.02 UNIT/MIN?DOSE RANGE OF VASOPRESSIN 0 TO 0.5 UNITS/H
     Route: 065
  8. AMIODARONE [Concomitant]
     Active Substance: AMIODARONE
     Indication: ATRIAL FIBRILLATION
     Route: 065
  9. ARGATROBAN. [Concomitant]
     Active Substance: ARGATROBAN
     Dosage: DECREASED TWICE TO 0.06 AND 0.015 MG/ML
     Route: 065
  10. NOREPINEPHRINE BITARTRATE INJECTION, USP [Suspect]
     Active Substance: NOREPINEPHRINE BITARTRATE
     Indication: BLOOD PRESSURE MANAGEMENT
     Route: 065

REACTIONS (2)
  - Drug ineffective [Unknown]
  - Heparin-induced thrombocytopenia [Recovering/Resolving]
